FAERS Safety Report 5872934-2 (Version None)
Quarter: 2008Q3

REPORT INFORMATION
  Report Type: 
  Country: None (occurrence: None)
  Receive Date: 20080905
  Receipt Date: 20080825
  Transmission Date: 20090109
  Serious: Yes (Death, Other)
  Sender: FDA-Public Use
  Company Number: IL-PFIZER INC-2008070843

PATIENT
  Age: 52 Year
  Sex: Female

DRUGS (3)
  1. PHENYTOIN [Suspect]
     Indication: PARTIAL SEIZURES
  2. CHEMOTHERAPY NOS [Interacting]
  3. DEXAMETHASONE TAB [Concomitant]

REACTIONS (8)
  - ANTICONVULSANT DRUG LEVEL INCREASED [None]
  - ATAXIA [None]
  - BALANCE DISORDER [None]
  - DEATH [None]
  - DIZZINESS [None]
  - DRUG INTERACTION [None]
  - DYSARTHRIA [None]
  - MALIGNANT NEOPLASM PROGRESSION [None]
